FAERS Safety Report 12234621 (Version 1)
Quarter: 2016Q2

REPORT INFORMATION
  Report Type: Spontaneous
  Country: AU (occurrence: AU)
  Receive Date: 20160404
  Receipt Date: 20160404
  Transmission Date: 20160815
  Serious: Yes (Other)
  Sender: FDA-Public Use
  Company Number: PHHY2016AU039482

PATIENT

DRUGS (3)
  1. PAZOPANIB [Suspect]
     Active Substance: PAZOPANIB
     Dosage: 1000 MG, QD
     Route: 065
  2. PAZOPANIB [Suspect]
     Active Substance: PAZOPANIB
     Indication: PRODUCT USED FOR UNKNOWN INDICATION
     Dosage: UNK
     Route: 065
  3. OMEPRAZOLE. [Concomitant]
     Active Substance: OMEPRAZOLE
     Indication: PRODUCT USED FOR UNKNOWN INDICATION
     Route: 065

REACTIONS (10)
  - Hair colour changes [Unknown]
  - Central nervous system lesion [Unknown]
  - Gastrooesophageal reflux disease [Unknown]
  - Metastases to pancreas [Unknown]
  - Dysgeusia [Unknown]
  - Metastases to the mediastinum [Unknown]
  - Metastases to kidney [Unknown]
  - Drug intolerance [Unknown]
  - Dysphonia [Unknown]
  - Hypothyroidism [Unknown]
